FAERS Safety Report 6900811-4 (Version None)
Quarter: 2010Q3

REPORT INFORMATION
  Report Type: 
  Country: None (occurrence: None)
  Receive Date: 20100803
  Receipt Date: 20100722
  Transmission Date: 20110219
  Serious: Yes (Hospitalization, Other)
  Sender: FDA-Public Use
  Company Number: US-PFIZER INC-2008031694

PATIENT
  Sex: Female
  Weight: 55.79 kg

DRUGS (12)
  1. CHANTIX [Suspect]
     Indication: SMOKING CESSATION THERAPY
     Dosage: UNK MG, UNK
     Route: 048
     Dates: start: 20070101
  2. TOPAMAX [Concomitant]
     Indication: HEADACHE
  3. PROMETHAZINE [Concomitant]
     Indication: NAUSEA
  4. PROMETHAZINE [Concomitant]
     Indication: VOMITING
  5. CYMBALTA [Concomitant]
     Indication: HEADACHE
  6. MECLIZINE [Concomitant]
     Indication: BALANCE DISORDER
  7. MIRTAZAPINE [Concomitant]
  8. TIZANIDINE HCL [Concomitant]
  9. ALPRAZOLAM [Concomitant]
     Indication: ANXIETY
  10. HYDROCODONE BITARTRATE [Concomitant]
     Indication: MUSCULOSKELETAL DISCOMFORT
  11. HYDROCODONE BITARTRATE [Concomitant]
  12. COPAXONE [Concomitant]

REACTIONS (19)
  - ABNORMAL DREAMS [None]
  - ANXIETY [None]
  - CENTRAL NERVOUS SYSTEM LESION [None]
  - CHRONIC OBSTRUCTIVE PULMONARY DISEASE [None]
  - DEHYDRATION [None]
  - DIARRHOEA [None]
  - DISTURBANCE IN ATTENTION [None]
  - FALL [None]
  - FEMUR FRACTURE [None]
  - LOSS OF CONSCIOUSNESS [None]
  - NERVOUSNESS [None]
  - OROPHARYNGEAL PAIN [None]
  - PNEUMONIA [None]
  - PSYCHOMOTOR HYPERACTIVITY [None]
  - SOMNAMBULISM [None]
  - SUICIDAL IDEATION [None]
  - VIOLENCE-RELATED SYMPTOM [None]
  - WEIGHT DECREASED [None]
  - WEIGHT INCREASED [None]
